FAERS Safety Report 6055859-1 (Version None)
Quarter: 2009Q1

REPORT INFORMATION
  Report Type: 
  Country: None (occurrence: None)
  Receive Date: 20090126
  Receipt Date: 20090114
  Transmission Date: 20090719
  Serious: Yes (Death)
  Sender: FDA-Public Use
  Company Number: 1-17282144

PATIENT

DRUGS (1)
  1. AMMONUL [Suspect]
     Dates: start: 20081201

REACTIONS (1)
  - NECROTISING ENTEROCOLITIS NEONATAL [None]
